FAERS Safety Report 6626723-1 (Version None)
Quarter: 2010Q1

REPORT INFORMATION
  Report Type: 
  Country: None (occurrence: None)
  Receive Date: 20100311
  Receipt Date: 20100301
  Transmission Date: 20100710
  Serious: Yes (Hospitalization)
  Sender: FDA-Public Use
  Company Number: US-BIOGENIDEC-2007BI021836

PATIENT
  Age: 36 Year
  Sex: Female
  Weight: 90 kg

DRUGS (3)
  1. TYSABRI [Suspect]
     Indication: MULTIPLE SCLEROSIS
     Route: 042
     Dates: start: 20070913, end: 20071011
  2. CYMBALTA [Concomitant]
  3. PROVIGIL [Concomitant]

REACTIONS (15)
  - BLOOD PRESSURE DECREASED [None]
  - COGNITIVE DISORDER [None]
  - FALL [None]
  - HEADACHE [None]
  - HYPERSENSITIVITY [None]
  - LOSS OF CONSCIOUSNESS [None]
  - MOBILITY DECREASED [None]
  - MUSCLE SPASMS [None]
  - NAUSEA [None]
  - PARAESTHESIA [None]
  - SINUS DISORDER [None]
  - SUBARACHNOID HAEMORRHAGE [None]
  - TINNITUS [None]
  - VISUAL IMPAIRMENT [None]
  - VOMITING [None]
